FAERS Safety Report 9539117 (Version 1)
Quarter: 2013Q3

REPORT INFORMATION
  Report Type: Spontaneous
  Country: US (occurrence: US)
  Receive Date: 20130920
  Receipt Date: 20130920
  Transmission Date: 20140515
  Serious: Yes (Other)
  Sender: FDA-Public Use
  Company Number: US-BAYER-2013-113894

PATIENT
  Age: 39 Year
  Sex: Female

DRUGS (10)
  1. YASMIN [Suspect]
  2. ALLEGRA [Concomitant]
     Dosage: UNK
     Dates: start: 20090224
  3. ALLEGRA [Concomitant]
     Dosage: UNK
     Dates: start: 20090325
  4. ALLEGRA [Concomitant]
     Dosage: UNK
     Dates: start: 20090423
  5. ALLEGRA [Concomitant]
     Dosage: UNK
     Dates: start: 20090520
  6. FLONASE [Concomitant]
     Dosage: UNK
     Route: 045
     Dates: start: 20090224
  7. FLONASE [Concomitant]
     Dosage: UNK
     Dates: start: 20090325
  8. FLONASE [Concomitant]
     Dosage: UNK
     Dates: start: 20090423
  9. FLONASE [Concomitant]
     Dosage: UNK
     Dates: start: 20090520
  10. NAPROXEN [Concomitant]
     Dosage: 550 MG, UNK
     Dates: start: 20090224

REACTIONS (1)
  - Deep vein thrombosis [None]
